FAERS Safety Report 10513077 (Version 3)
Quarter: 2015Q1

REPORT INFORMATION
  Report Type: Spontaneous
  Country: IT (occurrence: IT)
  Receive Date: 20141013
  Receipt Date: 20150123
  Transmission Date: 20150720
  Serious: Yes (Disabling)
  Sender: FDA-Public Use
  Company Number: IT-ROCHE-1472029

PATIENT
  Age: 56 Year
  Sex: Male

DRUGS (3)
  1. ZELBORAF [Suspect]
     Active Substance: VEMURAFENIB
     Indication: MALIGNANT MELANOMA
     Route: 048
     Dates: start: 20120515, end: 20120529
  2. NEBIVOLOL [Concomitant]
     Active Substance: NEBIVOLOL
     Indication: HYPERTENSION
     Route: 048
  3. SIMVASTATIN. [Suspect]
     Active Substance: SIMVASTATIN
     Indication: HYPERCHOLESTEROLAEMIA
     Route: 048
     Dates: start: 20121101, end: 20130214

REACTIONS (8)
  - Myalgia [Unknown]
  - Diarrhoea [Unknown]
  - Lymphadenopathy mediastinal [Unknown]
  - Metastatic malignant melanoma [Unknown]
  - Disease progression [Unknown]
  - Rash [Unknown]
  - Hypercholesterolaemia [Unknown]
  - Gastritis [Unknown]

NARRATIVE: CASE EVENT DATE: 20131130
